FAERS Safety Report 5082470-1 (Version None)
Quarter: 2006Q3

REPORT INFORMATION
  Report Type: 
  Country: None (occurrence: None)
  Receive Date: 20060814
  Receipt Date: 20060802
  Transmission Date: 20061208
  Serious: Yes (Hospitalization, Other)
  Sender: FDA-Public Use
  Company Number: 2006095218

PATIENT
  Age: 49 Year
  Sex: Male
  Weight: 95.2554 kg

DRUGS (2)
  1. GENOTROPIN [Suspect]
     Indication: HYPOPITUITARISM
     Dosage: 1.5-2YEARS - 07/08/06
     Dates: end: 20060708
  2. SYNTHROID [Concomitant]

REACTIONS (4)
  - DEAFNESS UNILATERAL [None]
  - NEOPLASM RECURRENCE [None]
  - POST PROCEDURAL COMPLICATION [None]
  - SINUSITIS [None]
